FAERS Safety Report 8126340-0 (Version None)
Quarter: 2012Q1

REPORT INFORMATION
  Report Type: 
  Country: None (occurrence: None)
  Receive Date: 20120209
  Receipt Date: 20120130
  Transmission Date: 20120608
  Serious: Yes (Disabling, Other)
  Sender: FDA-Public Use
  Company Number: DE-ABBOTT-12P-062-0903002-00

PATIENT
  Age: 50 Year
  Sex: Male
  Weight: 97 kg

DRUGS (3)
  1. TESTOSTERONE [Suspect]
     Indication: KLINEFELTER'S SYNDROME
     Dosage: GEL
     Route: 062
     Dates: start: 20090101
  2. TESTOVIRON-DEPOT [Suspect]
     Indication: HYPOGONADISM
     Dosage: 11.9048 MG, 1 IN 3 WK
     Route: 030
     Dates: start: 19930101
  3. RANIBETA [Concomitant]
     Indication: DYSPHAGIA
     Route: 065
     Dates: start: 20081201

REACTIONS (4)
  - SLEEP APNOEA SYNDROME [None]
  - FATIGUE [None]
  - DISTURBANCE IN ATTENTION [None]
  - DYSPHAGIA [None]
